FAERS Safety Report 6433423-X (Version None)
Quarter: 2009Q4

REPORT INFORMATION
  Report Type: 
  Country: None (occurrence: None)
  Receive Date: 20091106
  Receipt Date: 20091106
  Transmission Date: 20100525
  Serious: Yes (Other)
  Sender: FDA-Public Use
  Company Number: None

PATIENT
  Sex: Female
  Weight: 64.8644 kg

DRUGS (6)
  1. FORTEO [Suspect]
     Indication: OSTEOPOROSIS
     Dosage: 20 MCG DAILY SQ
     Route: 058
     Dates: start: 20081020, end: 20090920
  2. PROPRANOLOL HCL [Concomitant]
  3. ATACAND [Concomitant]
  4. NEURONTIN [Concomitant]
  5. ARIMIDEX [Concomitant]
  6. FLOVENT [Concomitant]

REACTIONS (8)
  - BLOOD CALCIUM INCREASED [None]
  - BLOOD PARATHYROID HORMONE INCREASED [None]
  - DIARRHOEA [None]
  - DRUG DOSE OMISSION [None]
  - FEELING ABNORMAL [None]
  - KNEE ARTHROPLASTY [None]
  - MALAISE [None]
  - VOMITING [None]
